FAERS Safety Report 9669385 (Version 1)
Quarter: 2013Q4

REPORT INFORMATION
  Report Type: Spontaneous
  Country: US (occurrence: US)
  Receive Date: 20131105
  Receipt Date: 20131105
  Transmission Date: 20140711
  Serious: Yes (Hospitalization)
  Sender: FDA-Public Use
  Company Number: US-ASTRAZENECA-2013SE80805

PATIENT
  Sex: 0

DRUGS (2)
  1. ZOLADEX [Suspect]
     Indication: SURGERY
     Route: 058
  2. LUPRON [Concomitant]
     Indication: SURGERY

REACTIONS (1)
  - Hernia [Unknown]
